FAERS Safety Report 20796497 (Version 1)
Quarter: 2022Q2

REPORT INFORMATION
  Report Type: Spontaneous
  Country: US (occurrence: US)
  Receive Date: 20220506
  Receipt Date: 20220506
  Transmission Date: 20220720
  Serious: No
  Sender: FDA-Public Use
  Company Number: US-ELI_LILLY_AND_COMPANY-US202205002371

PATIENT
  Sex: Male

DRUGS (2)
  1. HUMULIN N [Suspect]
     Active Substance: INSULIN HUMAN
     Indication: Type 2 diabetes mellitus
     Dosage: 18 U, UNKNOWN
     Route: 058
     Dates: start: 20220424
  2. PREDNISONE [Concomitant]
     Active Substance: PREDNISONE
     Indication: Surgery

REACTIONS (1)
  - Movement disorder [Unknown]
